FAERS Safety Report 12923096 (Version 2)
Quarter: 2016Q4

REPORT INFORMATION
  Report Type: Spontaneous
  Country: PE (occurrence: PE)
  Receive Date: 20161108
  Receipt Date: 20161117
  Transmission Date: 20170207
  Serious: No
  Sender: FDA-Public Use
  Company Number: PE-PFIZER INC-2016514170

PATIENT
  Age: 80 Year
  Sex: Male

DRUGS (1)
  1. XALATAN [Suspect]
     Active Substance: LATANOPROST
     Dosage: 1 GTT ONLY IN HIS RIGHT EYE, 1X/DAY
     Route: 047
     Dates: start: 201607

REACTIONS (1)
  - No adverse event [Unknown]
